FAERS Safety Report 6027714-4 (Version None)
Quarter: 2009Q1

REPORT INFORMATION
  Report Type: 
  Country: None (occurrence: None)
  Receive Date: 20090105
  Receipt Date: 20081215
  Transmission Date: 20090719
  Serious: Yes (Hospitalization, Other)
  Sender: FDA-Public Use
  Company Number: US-BAYER-200713772BWH

PATIENT
  Age: 74 Year
  Sex: Male
  Weight: 97 kg

DRUGS (13)
  1. NEXAVAR [Suspect]
     Indication: HEPATIC NEOPLASM MALIGNANT
     Dosage: TOTAL DAILY DOSE: 400 MG  UNIT DOSE: 200 MG
     Route: 048
     Dates: start: 20070920
  2. AVAPRO [Concomitant]
  3. NORVASC [Concomitant]
  4. SIMVASTATIN [Concomitant]
  5. NEXIUM [Concomitant]
     Dosage: TOTAL DAILY DOSE: 40 MG
  6. MYLANTA [Concomitant]
  7. CELEXA [Concomitant]
     Dosage: TOTAL DAILY DOSE: 30 MG
  8. ADVAIR DISKUS 250/50 [Concomitant]
  9. HYDROCHLOROTHIAZIDE [Concomitant]
     Dosage: TOTAL DAILY DOSE: 12.5 MG
  10. XANAX [Concomitant]
     Dosage: TOTAL DAILY DOSE: 1 MG
  11. GLUCOPHAGE XR [Concomitant]
     Dosage: TOTAL DAILY DOSE: 2000 MG  UNIT DOSE: 500 MG
  12. ASPIRIN [Concomitant]
     Dosage: TOTAL DAILY DOSE: 81 MG
  13. AMARYL [Concomitant]
     Dosage: TOTAL DAILY DOSE: 8 MG

REACTIONS (14)
  - ABDOMINAL DISCOMFORT [None]
  - ABDOMINAL PAIN UPPER [None]
  - ALOPECIA [None]
  - BACK PAIN [None]
  - DEHYDRATION [None]
  - DIARRHOEA [None]
  - DRY SKIN [None]
  - NAUSEA [None]
  - PAIN [None]
  - PANCREATITIS [None]
  - PRURITUS [None]
  - RASH [None]
  - SKIN IRRITATION [None]
  - VOMITING [None]
